FAERS Safety Report 7439727-6 (Version None)
Quarter: 2011Q2

REPORT INFORMATION
  Report Type: 
  Country: None (occurrence: None)
  Receive Date: 20110427
  Receipt Date: 20110203
  Transmission Date: 20111010
  Serious: No
  Sender: FDA-Public Use
  Company Number: US-MYLANLABS-2011S1002455

PATIENT
  Sex: Male

DRUGS (1)
  1. METHIMAZOLE [Suspect]

REACTIONS (2)
  - HYPERSENSITIVITY [None]
  - REACTION TO DRUG EXCIPIENTS [None]
